FAERS Safety Report 10718110 (Version 1)
Quarter: 2015Q1

REPORT INFORMATION
  Report Type: Spontaneous
  Country: CN (occurrence: CN)
  Receive Date: 20150117
  Receipt Date: 20150117
  Transmission Date: 20150721
  Serious: Yes (Hospitalization)
  Sender: FDA-Public Use
  Company Number: PHHY2015CN004834

PATIENT
  Age: 11 Year
  Sex: Male
  Weight: 25 kg

DRUGS (1)
  1. TEGRETOL [Suspect]
     Active Substance: CARBAMAZEPINE
     Indication: MENTAL RETARDATION
     Dosage: 200 MG, BID
     Route: 048
     Dates: start: 20140528, end: 20140530

REACTIONS (3)
  - Mucosal ulceration [Recovering/Resolving]
  - Exfoliative rash [Recovering/Resolving]
  - Mouth haemorrhage [Recovering/Resolving]

NARRATIVE: CASE EVENT DATE: 20140530
